FAERS Safety Report 21467937 (Version 11)
Quarter: 2023Q4

REPORT INFORMATION
  Report Type: Report from Study
  Country: CN (occurrence: CN)
  Receive Date: 20221017
  Receipt Date: 20231117
  Transmission Date: 20240110
  Serious: Yes (Hospitalization)
  Sender: FDA-Public Use
  Company Number: CN-PFIZER INC-PV202200081080

PATIENT
  Age: 51 Year
  Sex: Female
  Weight: 52 kg

DRUGS (15)
  1. PALBOCICLIB [Suspect]
     Active Substance: PALBOCICLIB
     Indication: Breast cancer metastatic
     Dosage: 125 MG, 1X/DAY (125 MG,1 IN 1 D)
     Route: 048
     Dates: start: 20211216
  2. PALBOCICLIB [Suspect]
     Active Substance: PALBOCICLIB
     Dosage: 100 MG
     Route: 048
  3. INAVOLISIB [Suspect]
     Active Substance: INAVOLISIB
     Indication: Breast cancer metastatic
     Dosage: 9 MG, 1X/DAY (9 MG,1 IN 1 D)
     Route: 048
     Dates: start: 20211216
  4. INAVOLISIB [Suspect]
     Active Substance: INAVOLISIB
     Dosage: 100 MG
     Route: 048
  5. FULVESTRANT [Suspect]
     Active Substance: FULVESTRANT
     Indication: Breast cancer metastatic
     Dosage: 500 MG, CYCLIC (500 MG,1 IN 4 WK)
     Route: 030
     Dates: start: 20211216
  6. LEUCOGEN [Concomitant]
     Active Substance: LEUCOGEN
     Dosage: 20 MG, 3X/DAY (20 MG,3 IN 1 D)
     Route: 048
     Dates: start: 20211230
  7. POTASSIUM CHLORIDE [Concomitant]
     Active Substance: POTASSIUM CHLORIDE
     Indication: Hypokalaemia
     Dosage: 0.5 G, 2X/DAY (0.5 G,2 IN 1 D)
     Route: 048
     Dates: start: 20211230
  8. URSODIOL [Concomitant]
     Active Substance: URSODIOL
     Indication: Blood bilirubin increased
     Dosage: 0.25 MG, 2X/DAY (0.25 MG,2 IN 1 D)
     Route: 048
     Dates: start: 20211223
  9. BICYCLOL [Concomitant]
     Active Substance: BICYCLOL
     Dosage: 25 MG, 2X/DAY (25 MG,2 IN 1 D)
     Route: 048
     Dates: start: 20211223
  10. METFORMIN HYDROCHLORIDE [Concomitant]
     Active Substance: METFORMIN HYDROCHLORIDE
     Indication: Hyperglycaemia
     Dosage: 0.5 G, 3X/DAY (0.5 G,3 IN 1 D)
     Route: 048
     Dates: start: 20220902
  11. METHOXYPHENAMINE [Concomitant]
     Active Substance: METHOXYPHENAMINE
     Indication: Cough
     Dosage: 25 MG, 3X/DAY (25 MG,3 IN 1 D)
     Route: 048
     Dates: start: 20220920
  12. CODEINE PHOSPHATE AND PLATYCODON TABLETS [Concomitant]
     Dosage: UNK
  13. LEVOFLOXACIN [Concomitant]
     Active Substance: LEVOFLOXACIN
     Indication: Anti-infective therapy
     Dosage: 0.4 G, 1X/DAY (0.4 G,QD)
     Route: 042
     Dates: start: 20221005, end: 20221021
  14. PACLITAXEL [Concomitant]
     Active Substance: PACLITAXEL
     Indication: Neoplasm malignant
     Dosage: UNK
     Route: 042
     Dates: start: 20221110
  15. SU HUANG ZHI KE [Concomitant]
     Dosage: UNK

REACTIONS (1)
  - Dyspnoea [Recovering/Resolving]

NARRATIVE: CASE EVENT DATE: 20221004
